FAERS Safety Report 8760575 (Version 1)
Quarter: 2012Q4

REPORT INFORMATION
  Report Type: 
  Country: US (occurrence: US)
  Receive Date: 20120830
  Receipt Date: 20120830
  Transmission Date: 20130627
  Serious: No
  Sender: FDA-Public Use
  Company Number: US-JNJFOC-20120808372

PATIENT
  Age: 57 Year
  Sex: Male
  Weight: 109.32 kg

DRUGS (5)
  1. INVEGA SUSTENNA [Suspect]
     Indication: PRODUCT USED FOR UNKNOWN INDICATION
     Route: 030
     Dates: start: 201202
  2. ARICEPT [Concomitant]
     Route: 048
  3. RESTORIL [Concomitant]
     Route: 048
  4. KLONOPIN [Concomitant]
     Route: 048
  5. GEODON [Concomitant]
     Route: 048

REACTIONS (2)
  - Sexual dysfunction [Unknown]
  - Weight increased [Unknown]
